FAERS Safety Report 9923296 (Version 1)
Quarter: 2014Q1

REPORT INFORMATION
  Report Type: Spontaneous
  Country: US (occurrence: US)
  Receive Date: 20140225
  Receipt Date: 20140225
  Transmission Date: 20141002
  Serious: No
  Sender: FDA-Public Use
  Company Number: US-AMGEN-USASP2013074930

PATIENT
  Age: 62 Year
  Sex: Male

DRUGS (1)
  1. ENBREL [Suspect]
     Indication: PSORIATIC ARTHROPATHY
     Dosage: 40 MG, 2 TIMES/WK
     Route: 065
     Dates: start: 20130716, end: 201308

REACTIONS (3)
  - Hypersensitivity [Recovered/Resolved]
  - Aphthous stomatitis [Recovered/Resolved]
  - Rash generalised [Recovered/Resolved]
